FAERS Safety Report 11742182 (Version 1)
Quarter: 2015Q4

REPORT INFORMATION
  Report Type: Spontaneous
  Country: US (occurrence: US)
  Receive Date: 20151116
  Receipt Date: 20151116
  Transmission Date: 20160304
  Serious: Yes (Hospitalization, Other)
  Sender: FDA-Public Use
  Company Number: US-ACTELION-A-NJ2015-110990

PATIENT
  Age: 74 Year
  Sex: Female

DRUGS (3)
  1. TRACLEER [Suspect]
     Active Substance: BOSENTAN
     Indication: PULMONARY ARTERIAL HYPERTENSION
     Dosage: UNK
     Route: 048
     Dates: start: 20141212
  2. SILDENAFIL. [Concomitant]
     Active Substance: SILDENAFIL
     Indication: PULMONARY ARTERIAL HYPERTENSION
     Dosage: UNK
  3. WARFARIN [Concomitant]
     Active Substance: WARFARIN

REACTIONS (10)
  - Hypotension [Unknown]
  - Paranasal sinus discomfort [Unknown]
  - Musculoskeletal discomfort [Unknown]
  - Pulmonary arterial hypertension [Recovering/Resolving]
  - Catheter site erythema [Unknown]
  - Catheter site pruritus [Unknown]
  - Vomiting [Unknown]
  - Right ventricular failure [Recovering/Resolving]
  - Nausea [Unknown]
  - Condition aggravated [Recovering/Resolving]

NARRATIVE: CASE EVENT DATE: 20141230
